FAERS Safety Report 4944264-4 (Version None)
Quarter: 2006Q1

REPORT INFORMATION
  Report Type: 
  Country: None (occurrence: None)
  Receive Date: 20060309
  Receipt Date: 20060224
  Transmission Date: 20060701
  Serious: Yes (Other)
  Sender: FDA-Public Use
  Company Number: HQWYE548820SEP05

PATIENT
  Age: 52 Year
  Sex: Female
  Weight: 51.76 kg

DRUGS (5)
  1. PREMARIN [Suspect]
  2. COMBIPATCH [Suspect]
  3. MEDROXYPROGESTERONE [Suspect]
  4. PREFEST [Suspect]
  5. PROMETRIUM [Suspect]

REACTIONS (1)
  - BREAST CANCER RECURRENT [None]
